FAERS Safety Report 17999917 (Version 2)
Quarter: 2020Q4

REPORT INFORMATION
  Report Type: Spontaneous
  Country: US (occurrence: US)
  Receive Date: 20200709
  Receipt Date: 20201014
  Transmission Date: 20210113
  Serious: No
  Sender: FDA-Public Use
  Company Number: US-PFIZER INC-2020262855

PATIENT
  Age: 60 Year
  Sex: Female

DRUGS (3)
  1. METHOTREXATE. [Concomitant]
     Active Substance: METHOTREXATE
     Dosage: UNK
  2. XELJANZ XR [Suspect]
     Active Substance: TOFACITINIB CITRATE
     Indication: RHEUMATOID ARTHRITIS
     Dosage: 11 MG, DAILY
     Route: 048
     Dates: start: 20190720
  3. FOLIC ACID. [Concomitant]
     Active Substance: FOLIC ACID
     Dosage: UNK

REACTIONS (9)
  - Swelling [Unknown]
  - Wrist deformity [Unknown]
  - Inflammation [Unknown]
  - Foot deformity [Unknown]
  - White blood cell count increased [Unknown]
  - Inflammatory marker increased [Unknown]
  - Pain [Unknown]
  - Knee deformity [Unknown]
  - Hand deformity [Unknown]
